FAERS Safety Report 4614880-8 (Version None)
Quarter: 2005Q1

REPORT INFORMATION
  Report Type: 
  Country: None (occurrence: None)
  Receive Date: 20050318
  Receipt Date: 20050318
  Transmission Date: 20050727
  Serious: No
  Sender: FDA-Public Use
  Company Number: None

PATIENT
  Age: 49 Year
  Sex: Male
  Weight: 75.2 kg

DRUGS (4)
  1. CARDENE [Suspect]
     Indication: CEREBROVASCULAR ACCIDENT
     Dosage: 10 MG    HOURLY    INTRAVENOU
     Route: 042
     Dates: start: 20050121, end: 20050122
  2. SERAX [Concomitant]
  3. DILANTIN [Concomitant]
  4. VANCOMYCIN [Concomitant]

REACTIONS (1)
  - INJECTION SITE EXTRAVASATION [None]
